FAERS Safety Report 24616227 (Version 1)
Quarter: 2024Q4

REPORT INFORMATION
  Report Type: Spontaneous
  Country: GB (occurrence: GB)
  Receive Date: 20241113
  Receipt Date: 20241113
  Transmission Date: 20250115
  Serious: Yes (Other)
  Sender: HETERO
  Company Number: GB-MHRA-EMIS-1014-ea3fd4bc-2749-4faa-b7dc-d391010602db

PATIENT
  Age: 55 Year
  Sex: Female
  Weight: 77 kg

DRUGS (7)
  1. PREGABALIN [Suspect]
     Active Substance: PREGABALIN
     Indication: Product used for unknown indication
     Dosage: 75 MILLIGRAM, BID (PRIVIOUSLY)
     Route: 065
     Dates: start: 20240806
  2. PREGABALIN [Suspect]
     Active Substance: PREGABALIN
     Dosage: 150 UNK, BID (ONE TO BE TAKEN TWICE A DAY150MG BD )
     Dates: start: 20240806
  3. ESTRADIOL\NORETHINDRONE ACETATE [Concomitant]
     Active Substance: ESTRADIOL\NORETHINDRONE ACETATE
     Indication: Product used for unknown indication
     Dosage: UNK (TO BE USED AS DIRECTED)
     Route: 065
     Dates: start: 20240806
  4. AMOXICILLIN [Concomitant]
     Active Substance: AMOXICILLIN
     Indication: Product used for unknown indication
     Dosage: 1 DOSAGE FORM, TID (ONE TO BE TAKEN THREE TIMES A DAY)
     Route: 065
     Dates: start: 20240816, end: 20240914
  5. NITROFURANTOIN [Concomitant]
     Active Substance: NITROFURANTOIN
     Indication: Product used for unknown indication
     Dosage: 1 DOSAGE FORM, BID (ONE TO BE TAKEN TWICE A DAY)
     Route: 065
     Dates: start: 20240920, end: 20241019
  6. MOMETASONE [Concomitant]
     Active Substance: MOMETASONE
     Indication: Product used for unknown indication
     Dosage: 4 DOSAGE FORM, BID (TWO SPRAYS TO BE USED IN EACH NOSTRIL TWICE A DAY, THEN REDUCE WHEN SYMPTOMS UND
     Route: 045
     Dates: start: 20240926
  7. METHYLPHENIDATE HYDROCHLORIDE [Concomitant]
     Active Substance: METHYLPHENIDATE HYDROCHLORIDE
     Indication: Product used for unknown indication
     Dosage: 30 MILLIGRAM, QD (1 DAILY [AS PER YOUR SHARED CARE AGREEMENT MARCH 2023 AND STOCK AVAILABILITY 36MG)
     Route: 065
     Dates: start: 20241024, end: 20241025

REACTIONS (2)
  - Accidental overdose [Unknown]
  - Somnolence [Recovering/Resolving]

NARRATIVE: CASE EVENT DATE: 20240806
